FAERS Safety Report 5057035-8 (Version None)
Quarter: 2006Q2

REPORT INFORMATION
  Report Type: 
  Country: None (occurrence: None)
  Receive Date: 20060622
  Receipt Date: 20050812
  Transmission Date: 20061013
  Serious: Yes (Death)
  Sender: FDA-Public Use
  Company Number: US-JNJFOC-20050802942

PATIENT
  Age: 50 Year
  Sex: Female
  Weight: 97.5234 kg

DRUGS (8)
  1. DURAGESIC-100 [Suspect]
     Indication: PAIN
     Dosage: SEE IMAGE
     Route: 062
     Dates: start: 20010116, end: 20020226
  2. DURAGESIC-100 [Suspect]
     Indication: PAIN
     Dosage: SEE IMAGE
     Route: 062
     Dates: end: 20030117
  3. DURAGESIC-100 [Suspect]
     Indication: PAIN
     Dosage: SEE IMAGE
     Route: 062
     Dates: end: 20040715
  4. DURAGESIC-100 [Suspect]
     Indication: PAIN
     Dosage: SEE IMAGE
     Route: 062
     Dates: end: 20040719
  5. LORTAB [Suspect]
     Indication: DRUG USE FOR UNKNOWN INDICATION
  6. AMBIEN [Concomitant]
  7. PROZAC [Concomitant]
  8. XANAX [Concomitant]

REACTIONS (3)
  - CONFUSIONAL STATE [None]
  - DRUG TOXICITY [None]
  - STOMACH DISCOMFORT [None]
